FAERS Safety Report 4608874-6 (Version None)
Quarter: 2005Q1

REPORT INFORMATION
  Report Type: 
  Country: None (occurrence: None)
  Receive Date: 20050315
  Receipt Date: 20050309
  Transmission Date: 20050727
  Serious: Yes (Other)
  Sender: FDA-Public Use
  Company Number: US-BRISTOL-MYERS SQUIBB COMPANY-12893038

PATIENT
  Age: 48 Year
  Sex: Male

DRUGS (6)
  1. SUSTIVA [Suspect]
     Indication: HIV INFECTION
     Dates: start: 20020102, end: 20040527
  2. VIREAD [Suspect]
     Indication: HIV INFECTION
     Dates: start: 20020102, end: 20040527
  3. KALETRA [Suspect]
     Indication: HIV INFECTION
     Dates: start: 20020102, end: 20040527
  4. DEPO-TESTOSTERONE [Concomitant]
  5. PEG-INTRON [Concomitant]
  6. RIBAVIRIN [Concomitant]

REACTIONS (2)
  - LIVER FUNCTION TEST ABNORMAL [None]
  - POLYMYOSITIS [None]
